FAERS Safety Report 7725718-4 (Version None)
Quarter: 2011Q3

REPORT INFORMATION
  Report Type: 
  Country: None (occurrence: None)
  Receive Date: 20110830
  Receipt Date: 20110819
  Transmission Date: 20111222
  Serious: Yes (Other)
  Sender: FDA-Public Use
  Company Number: 1000022196

PATIENT
  Age: 48 Year
  Sex: Female
  Weight: 68.95 kg

DRUGS (2)
  1. SAVELLA [Suspect]
     Indication: FIBROMYALGIA
     Dosage: 50 MG (25 MG, 2 IN 1 D), ORAL
     Route: 047
     Dates: start: 20100215, end: 20100828
  2. ESTRADIOL [Concomitant]

REACTIONS (13)
  - CARDIAC FAILURE [None]
  - ELECTROCARDIOGRAM ST-T CHANGE [None]
  - SINUS TACHYCARDIA [None]
  - PULMONARY OEDEMA [None]
  - DYSPNOEA [None]
  - ORTHOPNOEA [None]
  - CARDIOMEGALY [None]
  - PERICARDIAL EFFUSION [None]
  - CARDIOMYOPATHY [None]
  - ANXIETY [None]
  - PLEURAL EFFUSION [None]
  - HYPERTENSION [None]
  - ELECTROCARDIOGRAM POOR R-WAVE PROGRESSION [None]
